FAERS Safety Report 9855701 (Version 2)
Quarter: 2014Q1

REPORT INFORMATION
  Report Type: Spontaneous
  Country: JP (occurrence: JP)
  Receive Date: 20140130
  Receipt Date: 20140210
  Transmission Date: 20141002
  Serious: Yes (Other)
  Sender: FDA-Public Use
  Company Number: JP-PFIZER INC-2014024364

PATIENT
  Age: 79 Year
  Sex: Male

DRUGS (8)
  1. CAMPTO [Suspect]
     Indication: LUNG NEOPLASM MALIGNANT
     Dosage: 100 MG, 1X/DAY
     Route: 041
     Dates: start: 20131024, end: 20131216
  2. CARBOPLATIN [Concomitant]
     Dosage: UNK
     Dates: start: 20131024, end: 20131216
  3. ALOXI [Concomitant]
     Dosage: UNK
     Dates: start: 20131024, end: 20131216
  4. DECADRON [Concomitant]
     Dosage: UNK
     Dates: start: 20131024, end: 20131216
  5. BLOPRESS [Concomitant]
  6. AMLODIPINE OD [Concomitant]
  7. AMARYL [Concomitant]
  8. FEBURIC [Concomitant]

REACTIONS (1)
  - Interstitial lung disease [Recovered/Resolved]
